FAERS Safety Report 19083142 (Version 1)
Quarter: 2021Q2

REPORT INFORMATION
  Report Type: Spontaneous
  Country: GB (occurrence: GB)
  Receive Date: 20210401
  Receipt Date: 20210401
  Transmission Date: 20210717
  Serious: Yes (Other)
  Sender: FDA-Public Use
  Company Number: NVSC2021GB065331

PATIENT
  Age: 6 Year
  Sex: Female

DRUGS (4)
  1. CETRABEN EMOLLIENT [Concomitant]
     Indication: PRODUCT USED FOR UNKNOWN INDICATION
     Dosage: UNK AS NECESSARY
     Route: 065
     Dates: start: 20201012
  2. SALBUTAMOL [Concomitant]
     Active Substance: ALBUTEROL
     Indication: PRODUCT USED FOR UNKNOWN INDICATION
     Dosage: 2 DF AS NECESSARY
     Route: 055
     Dates: start: 20190912
  3. MONTELUKAST [Suspect]
     Active Substance: MONTELUKAST SODIUM
     Indication: PRODUCT USED FOR UNKNOWN INDICATION
     Dosage: 5 MG
     Route: 065
     Dates: end: 202009
  4. FLUTICASONE. [Concomitant]
     Active Substance: FLUTICASONE
     Indication: PRODUCT USED FOR UNKNOWN INDICATION
     Dosage: UNK PRODUCT USED FOR UNKNOWN INDICATION
     Route: 055
     Dates: start: 20190912

REACTIONS (7)
  - Intentional self-injury [Recovering/Resolving]
  - Decreased appetite [Not Recovered/Not Resolved]
  - Nausea [Recovering/Resolving]
  - Obsessive-compulsive disorder [Unknown]
  - Hallucinations, mixed [Recovering/Resolving]
  - Anxiety [Not Recovered/Not Resolved]
  - Aggression [Recovering/Resolving]
